FAERS Safety Report 5580154-4 (Version None)
Quarter: 2007Q4

REPORT INFORMATION
  Report Type: 
  Country: None (occurrence: None)
  Receive Date: 20071228
  Receipt Date: 20071218
  Transmission Date: 20080405
  Serious: Yes (Congenital Anomaly)
  Sender: FDA-Public Use
  Company Number: 2007S1013536

PATIENT
  Age: 38 Year
  Sex: Male
  Weight: 2.22 kg

DRUGS (1)
  1. FLUOXETINE [Suspect]
     Indication: DRUG USE FOR UNKNOWN INDICATION
     Dosage: TRANSPLACENTAL
     Route: 064

REACTIONS (7)
  - ATRIAL SEPTAL DEFECT [None]
  - DRUG EXPOSURE DURING PREGNANCY [None]
  - FOETAL GROWTH RETARDATION [None]
  - HEART DISEASE CONGENITAL [None]
  - HYPOGLYCAEMIA [None]
  - HYPOTHERMIA [None]
  - PATENT DUCTUS ARTERIOSUS [None]
